FAERS Safety Report 13108455 (Version 1)
Quarter: 2017Q1

REPORT INFORMATION
  Report Type: Spontaneous
  Country: FR (occurrence: FR)
  Receive Date: 20170112
  Receipt Date: 20170112
  Transmission Date: 20170428
  Serious: Yes (Other)
  Sender: FDA-Public Use
  Company Number: FR-ASTRAZENECA-2017SE01878

PATIENT
  Age: 20459 Day
  Sex: Female

DRUGS (3)
  1. LEVOTHYROX [Concomitant]
     Active Substance: LEVOTHYROXINE
     Dates: start: 2013
  2. PROFEMIGR (KETOPROFEN) [Suspect]
     Active Substance: KETOPROFEN
     Indication: MIGRAINE
     Route: 065
     Dates: start: 20161123, end: 20161123
  3. HYTACAND [Suspect]
     Active Substance: CANDESARTAN CILEXETIL\HYDROCHLOROTHIAZIDE
     Indication: HYPERTENSION
     Route: 048
     Dates: start: 2013

REACTIONS (7)
  - Face oedema [Recovered/Resolved]
  - Angioedema [Unknown]
  - Dyspnoea [Unknown]
  - Erythema [Recovered/Resolved]
  - White blood cell count increased [Unknown]
  - Fibrin D dimer increased [Unknown]
  - Rash pruritic [Unknown]

NARRATIVE: CASE EVENT DATE: 20161123
